FAERS Safety Report 10480565 (Version 1)
Quarter: 2014Q3

REPORT INFORMATION
  Report Type: Spontaneous
  Country: US (occurrence: None)
  Receive Date: 20140926
  Receipt Date: 20140926
  Transmission Date: 20150326
  Serious: Yes (Disabling)
  Sender: FDA-Public Use
  Company Number: None

PATIENT
  Age: 45 Year
  Sex: Male
  Weight: 62.6 kg

DRUGS (1)
  1. ABILIFY [Suspect]
     Active Substance: ARIPIPRAZOLE
     Indication: DEPRESSION
     Dosage: 1/2 TO 1 DAILY ONCE DAILY TAKEN BY MOUTH
     Route: 048
     Dates: start: 20140905, end: 20140908

REACTIONS (2)
  - Sleep terror [None]
  - Suicidal ideation [None]

NARRATIVE: CASE EVENT DATE: 20140901
